FAERS Safety Report 17550032 (Version 1)
Quarter: 2020Q1

REPORT INFORMATION
  Report Type: Spontaneous
  Country: GB (occurrence: GB)
  Receive Date: 20200317
  Receipt Date: 20200317
  Transmission Date: 20200409
  Serious: Yes (Hospitalization, Other)
  Sender: FDA-Public Use
  Company Number: GB-JNJFOC-20200318388

PATIENT
  Age: 78 Year
  Sex: Female
  Weight: 76 kg

DRUGS (18)
  1. RIVAROXABAN [Suspect]
     Active Substance: RIVAROXABAN
     Indication: PRODUCT USED FOR UNKNOWN INDICATION
     Route: 048
  2. DIGOXIN. [Concomitant]
     Active Substance: DIGOXIN
     Dosage: 62.5 UG
     Dates: start: 20200206
  3. PANTOPRAZOLE [Concomitant]
     Active Substance: PANTOPRAZOLE
     Dosage: 80 MG
     Dates: start: 20191227, end: 20200127
  4. SODIUM ALGINATE [Concomitant]
     Active Substance: SODIUM ALGINATE
     Dosage: AS DIRECTED
     Dates: start: 20191227
  5. METOPROLOL. [Concomitant]
     Active Substance: METOPROLOL
     Dosage: 50 MG
     Dates: start: 20200127, end: 20200204
  6. PREDNISOLONE. [Concomitant]
     Active Substance: PREDNISOLONE
     Dosage: 40 MG, QD
     Dates: start: 20191202
  7. AMOXICILLIN. [Concomitant]
     Active Substance: AMOXICILLIN
     Dates: start: 20200110
  8. FUROSEMIDE. [Concomitant]
     Active Substance: FUROSEMIDE
     Dates: start: 20200127
  9. FOSTAIR [Concomitant]
     Active Substance: BECLOMETHASONE\FORMOTEROL
     Dosage: PUFF?100MICROGRAMS/DOSE / 6MICROGRAMS/DOSE
     Route: 055
     Dates: start: 20200113
  10. GAVISCON DOUBLE ACTION [Concomitant]
     Dosage: 1-2, 10ML SACHETS UP TO FOUR TIMES DAILY
     Dates: start: 20191202
  11. ATENOLOL. [Concomitant]
     Active Substance: ATENOLOL
     Dates: start: 20200212
  12. RANITIDINE. [Concomitant]
     Active Substance: RANITIDINE
     Dates: start: 20191212
  13. NEBIVOLOL. [Concomitant]
     Active Substance: NEBIVOLOL
     Dosage: 2.5 MG
     Dates: start: 20200113
  14. HYDROXOCOBALAMIN [Concomitant]
     Active Substance: HYDROXOCOBALAMIN
     Dosage: IMMEDIATELY ?1MG/1ML
     Dates: start: 20200110
  15. IVABRADINE [Concomitant]
     Active Substance: IVABRADINE
     Dates: start: 20191202, end: 20200120
  16. FLUTIFORM [Concomitant]
     Active Substance: FLUTICASONE PROPIONATE\FORMOTEROL FUMARATE
     Dosage: PUFFS?125MICROGRAMS/DOSE / 5MICROGRAMS/DOSE
     Route: 055
     Dates: start: 20200127
  17. COTRIMOXAZOLE [Concomitant]
     Active Substance: SULFAMETHOXAZOLE\TRIMETHOPRIM
     Dosage: MONDAY, WEDNESDAY AND FRIDAY?80MG/400MG
     Dates: start: 20191202
  18. BECLOMETASONE;FORMOTEROL [Concomitant]
     Active Substance: BECLOMETHASONE\FORMOTEROL
     Dosage: PUFFS?87MICROGRAMS/DOSE / 5MICROGRAMS/DOSE / 9MICROGRAM
     Dates: start: 20191220

REACTIONS (1)
  - Headache [Recovered/Resolved]

NARRATIVE: CASE EVENT DATE: 20200113
